FAERS Safety Report 7984152-2 (Version None)
Quarter: 2011Q4

REPORT INFORMATION
  Report Type: 
  Country: None (occurrence: None)
  Receive Date: 20111216
  Receipt Date: 20111212
  Transmission Date: 20120403
  Serious: No
  Sender: FDA-Public Use
  Company Number: US-PFIZER INC-2011263120

PATIENT
  Sex: Female

DRUGS (1)
  1. PROTONIX [Suspect]
     Dosage: 40 MG, UNK
     Route: 048

REACTIONS (3)
  - GASTROINTESTINAL DISORDER [None]
  - DRUG INEFFECTIVE [None]
  - FRUSTRATION [None]
